FAERS Safety Report 9030691 (Version 4)
Quarter: 2013Q2

REPORT INFORMATION
  Report Type: Spontaneous
  Country: US (occurrence: US)
  Receive Date: 20130123
  Receipt Date: 20130426
  Transmission Date: 20140414
  Serious: No
  Sender: FDA-Public Use
  Company Number: US-PFIZER INC-2013027876

PATIENT
  Age: 82 Year
  Sex: Female
  Weight: 82 kg

DRUGS (12)
  1. LYRICA [Suspect]
     Indication: PAIN IN EXTREMITY
     Dosage: 50 MG, 2X/DAY
     Route: 048
  2. LYRICA [Suspect]
     Indication: FIBROMYALGIA
     Dosage: 50 MG, 1X/DAY
     Dates: end: 201301
  3. LYRICA [Suspect]
     Dosage: UNK
     Dates: end: 201303
  4. NEURONTIN [Suspect]
     Indication: PAIN IN EXTREMITY
     Dosage: UNK
  5. FLEXERIL [Suspect]
     Indication: MUSCLE SPASMS
     Dosage: UNK
  6. OXYCODONE [Concomitant]
     Indication: PAIN
     Dosage: 10 MG, EVERY 8 HRS AS NEEDED
  7. XANAX [Concomitant]
     Indication: ANXIETY
     Dosage: 1 MG, 2X/DAY AS NEEDED
  8. ACETYLSALICYLIC ACID [Concomitant]
     Indication: PROPHYLAXIS
     Dosage: 81 MG, 1X/DAY
  9. AMLODIPINE BESILATE [Concomitant]
     Indication: CARDIAC DISORDER
     Dosage: 2.5 MG, 1X/DAY
  10. PROMETHAZINE [Concomitant]
     Indication: NAUSEA
     Dosage: 25 MG, AS NEEDED
  11. ZOLOFT [Concomitant]
     Indication: DEPRESSION
     Dosage: 100 MG, 1X/DAY
  12. METFORMIN [Concomitant]
     Indication: DIABETES MELLITUS
     Dosage: 500 MG, 2X/DAY

REACTIONS (4)
  - Intentional drug misuse [Unknown]
  - Pain in extremity [Unknown]
  - Muscle spasms [Unknown]
  - Drug ineffective [Unknown]
